FAERS Safety Report 25573726 (Version 1)
Quarter: 2025Q3

REPORT INFORMATION
  Report Type: Spontaneous
  Country: US (occurrence: None)
  Receive Date: 20250716
  Receipt Date: 20250716
  Transmission Date: 20251021
  Serious: Yes (Life-Threatening, Hospitalization)
  Sender: FDA-CTU
  Company Number: None

PATIENT

DRUGS (1)
  1. HERBALS\TETRAHYDROCANNABIPHOROL [Suspect]
     Active Substance: HERBALS\TETRAHYDROCANNABIPHOROL
     Indication: Disease recurrence
     Dates: start: 20250614

REACTIONS (3)
  - Seizure [None]
  - Product use in unapproved indication [None]
  - Product communication issue [None]

NARRATIVE: CASE EVENT DATE: 20250614
